FAERS Safety Report 5420224-4 (Version None)
Quarter: 2007Q3

REPORT INFORMATION
  Report Type: 
  Country: None (occurrence: None)
  Receive Date: 20070815
  Receipt Date: 20070806
  Transmission Date: 20080115
  Serious: Yes (Death, Other)
  Sender: FDA-Public Use
  Company Number: 17196

PATIENT
  Age: 35 Year
  Sex: Female

DRUGS (5)
  1. EPIRUBICIN [Suspect]
     Indication: MALIGNANT HISTIOCYTOSIS
  2. ETOPOSIDE [Suspect]
     Indication: MALIGNANT HISTIOCYTOSIS
  3. CYCLOPHOSPHAMIDE [Concomitant]
  4. PREDNISOLONE [Concomitant]
  5. RADIOTHERAPY [Concomitant]

REACTIONS (1)
  - ACUTE PROMYELOCYTIC LEUKAEMIA [None]
